FAERS Safety Report 8942092 (Version 1)
Quarter: 2012Q4

REPORT INFORMATION
  Report Type: 
  Country: US (occurrence: US)
  Receive Date: 20121130
  Receipt Date: 20121130
  Transmission Date: 20130627
  Serious: Yes (Hospitalization)
  Sender: FDA-Public Use
  Company Number: US-GLAXOSMITHKLINE-A1003407A

PATIENT
  Sex: Female

DRUGS (6)
  1. ZANTAC [Suspect]
     Indication: GASTROOESOPHAGEAL REFLUX DISEASE
     Route: 065
  2. ZOFRAN [Suspect]
     Indication: NAUSEA
     Route: 065
  3. REGLAN [Suspect]
     Indication: NAUSEA
     Route: 065
  4. PROTONIX [Suspect]
     Indication: GASTROOESOPHAGEAL REFLUX DISEASE
  5. ZITHROMAX [Suspect]
     Indication: NASOPHARYNGITIS
     Route: 065
  6. ROBITUSSIN [Suspect]
     Indication: NASOPHARYNGITIS
     Route: 065

REACTIONS (10)
  - Haemoglobin decreased [Unknown]
  - Live birth [Unknown]
  - Candidiasis [Unknown]
  - Nasopharyngitis [Unknown]
  - Urinary tract infection [Unknown]
  - Exposure during pregnancy [Unknown]
  - Placenta praevia [Unknown]
  - Vaginal haemorrhage [Unknown]
  - Infusion site infection [Unknown]
  - Premature labour [Unknown]
